FAERS Safety Report 19900304 (Version 1)
Quarter: 2021Q3

REPORT INFORMATION
  Report Type: Spontaneous
  Country: CN (occurrence: CN)
  Receive Date: 20210930
  Receipt Date: 20210930
  Transmission Date: 20211014
  Serious: Yes (Life-Threatening, Other)
  Sender: FDA-Public Use
  Company Number: CN-009507513-2109CHN006791

PATIENT
  Age: 67 Year
  Sex: Female
  Weight: 41 kg

DRUGS (1)
  1. TIENAM [Suspect]
     Active Substance: CILASTATIN SODIUM\IMIPENEM
     Indication: ANTI-INFECTIVE THERAPY
     Dosage: 1 GRAM, TID
     Route: 041
     Dates: start: 20210818, end: 20210819

REACTIONS (2)
  - Epilepsy [Recovering/Resolving]
  - Hyperkalaemia [Unknown]

NARRATIVE: CASE EVENT DATE: 20210819
